FAERS Safety Report 5255980-1 (Version None)
Quarter: 2007Q1

REPORT INFORMATION
  Report Type: 
  Country: None (occurrence: None)
  Receive Date: 20070302
  Receipt Date: 20070302
  Transmission Date: 20070707
  Serious: Yes (Death)
  Sender: FDA-Public Use
  Company Number: None

PATIENT
  Age: 52 Year
  Sex: Male
  Weight: 97.5234 kg

DRUGS (2)
  1. METHADONE HCL [Suspect]
     Indication: PAIN
     Dosage: 3-4X DAILY
     Dates: start: 20040101, end: 20061118
  2. XANAX [Suspect]
     Indication: ANXIETY
     Dosage: EVERY 4 HOURS
     Dates: start: 20030101, end: 20061118

REACTIONS (1)
  - DRUG TOXICITY [None]
